FAERS Safety Report 24764902 (Version 1)
Quarter: 2024Q4

REPORT INFORMATION
  Report Type: Spontaneous
  Country: FR (occurrence: FR)
  Receive Date: 20241223
  Receipt Date: 20241223
  Transmission Date: 20250114
  Serious: Yes (Other)
  Sender: AUROBINDO
  Company Number: FR-002147023-NVSC2019FR075743

PATIENT
  Age: 13 Year
  Sex: Female

DRUGS (15)
  1. IRINOTECAN [Suspect]
     Active Substance: IRINOTECAN
     Indication: Benign lung neoplasm
     Dosage: 1 UNK, ON DAY 1 AND 5; ADMINISTERED EVERY 3 WEEKS
     Route: 042
     Dates: start: 201604
  2. NAVELBINE [Suspect]
     Active Substance: VINORELBINE TARTRATE
     Indication: Benign lung neoplasm
     Dosage: 1 DOSAGE FORM, ONCE A DAY
     Route: 065
     Dates: start: 201702, end: 201705
  3. BEVACIZUMAB [Suspect]
     Active Substance: BEVACIZUMAB
     Indication: Benign lung neoplasm
     Dosage: 0..5 WEEK RECEIVED SIX MONTHS POST TOPOTECAN AND TEMOZOLOMIDE INITIATION; RECEIVED }6 CYCLES
     Route: 042
  4. BEVACIZUMAB [Suspect]
     Active Substance: BEVACIZUMAB
     Dosage: UNK
     Route: 042
     Dates: start: 201807
  5. TEMOZOLOMIDE [Suspect]
     Active Substance: TEMOZOLOMIDE
     Indication: Benign lung neoplasm
     Dosage: 1 UNK (ON DAY 1 AND 5; ADMINISTERED EVERY 3 WEEKS)
     Route: 042
     Dates: start: 201604
  6. TEMOZOLOMIDE [Suspect]
     Active Substance: TEMOZOLOMIDE
     Dosage: ON DAY 1 AND 5; RECEIVED }13 CYCLES
     Route: 042
     Dates: start: 201801
  7. ACTINOMYCIN D [Suspect]
     Active Substance: DACTINOMYCIN
     Indication: Benign lung neoplasm
     Dosage: 1 UNK (ON DAY 1; ADMINISTERED EVERY 3 WEEKS)
     Route: 065
     Dates: start: 201604
  8. CYCLOPHOSPHAMIDE [Suspect]
     Active Substance: CYCLOPHOSPHAMIDE
     Indication: Benign lung neoplasm
     Dosage: 1 DOSAGE FORM, DAILY
     Route: 065
     Dates: start: 201702, end: 201705
  9. CYCLOPHOSPHAMIDE [Suspect]
     Active Substance: CYCLOPHOSPHAMIDE
     Indication: Hamartoma
     Dosage: UNK
     Route: 065
     Dates: start: 201702
  10. YONDELIS [Suspect]
     Active Substance: TRABECTEDIN
     Indication: Benign lung neoplasm
     Dosage: RECEIVED IN EVERY 3 WEEKS
     Route: 065
     Dates: start: 201705
  11. TOPOTECAN [Suspect]
     Active Substance: TOPOTECAN HYDROCHLORIDE
     Indication: Benign lung neoplasm
     Dosage: MONTHLY(}13 CYCLES)
     Route: 042
  12. TOPOTECAN [Suspect]
     Active Substance: TOPOTECAN HYDROCHLORIDE
     Dosage: RECEIVED ON DAY 1 AND 5; RECEIVED }13 CYCLES
     Route: 042
     Dates: start: 201801
  13. VINCRISTINE [Suspect]
     Active Substance: VINCRISTINE
     Indication: Benign lung neoplasm
     Dosage: 1 UNK, 3 WEEK
     Route: 065
     Dates: start: 201604
  14. VINCRISTINE [Suspect]
     Active Substance: VINCRISTINE
     Dosage: PULMONARY HAMARTOMA
     Route: 065
     Dates: start: 201604
  15. IFOSFAMIDE [Suspect]
     Active Substance: IFOSFAMIDE
     Indication: Benign lung neoplasm
     Dosage: 1 UNK, 3 WEEK (DAY1, D2, Q3W)
     Route: 065
     Dates: start: 201604

REACTIONS (8)
  - Malignant neoplasm progression [Unknown]
  - Benign lung neoplasm [Unknown]
  - Nausea [Not Recovered/Not Resolved]
  - Chronic respiratory disease [Unknown]
  - Vomiting [Not Recovered/Not Resolved]
  - Neutropenia [Not Recovered/Not Resolved]
  - Product use in unapproved indication [Unknown]
  - Off label use [Unknown]

NARRATIVE: CASE EVENT DATE: 20160101
